FAERS Safety Report 8189778-1 (Version None)
Quarter: 2012Q1

REPORT INFORMATION
  Report Type: 
  Country: None (occurrence: None)
  Receive Date: 20120307
  Receipt Date: 20110207
  Transmission Date: 20120608
  Serious: No
  Sender: FDA-Public Use
  Company Number: US-GLAXOSMITHKLINE-A0912255A

PATIENT
  Age: 41 Year
  Sex: Female

DRUGS (2)
  1. REQUIP [Suspect]
     Indication: RESTLESS LEGS SYNDROME
     Route: 065
     Dates: start: 20110124
  2. METHADON HCL TAB [Concomitant]

REACTIONS (6)
  - HYPERHIDROSIS [None]
  - NAUSEA [None]
  - RESTLESS LEGS SYNDROME [None]
  - ARTHRALGIA [None]
  - RHINORRHOEA [None]
  - LACRIMATION INCREASED [None]
